FAERS Safety Report 6329479-5 (Version None)
Quarter: 2009Q3

REPORT INFORMATION
  Report Type: 
  Country: None (occurrence: None)
  Receive Date: 20090826
  Receipt Date: 20090819
  Transmission Date: 20100115
  Serious: Yes (Hospitalization)
  Sender: FDA-Public Use
  Company Number: US-ELI_LILLY_AND_COMPANY-US200908000189

PATIENT
  Sex: Male

DRUGS (5)
  1. HUMALOG [Suspect]
     Dosage: UNK, AS NEEDED
     Dates: start: 19950101
  2. HUMULIN R [Suspect]
     Dosage: UNK, AS NEEDED
  3. LANTUS [Concomitant]
     Dosage: 17 U, UNKNOWN
  4. LANTUS [Concomitant]
     Dosage: 22 U, UNKNOWN
  5. PROGRAFT [Concomitant]

REACTIONS (5)
  - BLOOD GLUCOSE INCREASED [None]
  - CROHN'S DISEASE [None]
  - EXPIRED DRUG ADMINISTERED [None]
  - INTENTIONAL DRUG MISUSE [None]
  - RENAL FAILURE [None]
